FAERS Safety Report 20315673 (Version 6)
Quarter: 2022Q4

REPORT INFORMATION
  Report Type: Spontaneous
  Country: US (occurrence: US)
  Receive Date: 20220110
  Receipt Date: 20221219
  Transmission Date: 20230113
  Serious: No
  Sender: FDA-Public Use
  Company Number: US-Blueprint Medicines Corporation-SP-US-2021-002662

PATIENT
  Sex: Female

DRUGS (2)
  1. AYVAKIT [Suspect]
     Active Substance: AVAPRITINIB
     Indication: Systemic mastocytosis
     Route: 048
     Dates: start: 20211211
  2. AYVAKIT [Suspect]
     Active Substance: AVAPRITINIB
     Route: 065

REACTIONS (8)
  - Oral pain [Unknown]
  - Blood albumin abnormal [Unknown]
  - Stomatitis [Unknown]
  - Dry mouth [Unknown]
  - Malaise [Unknown]
  - Constipation [Recovering/Resolving]
  - Swelling face [Unknown]
  - Hair colour changes [Unknown]
